FAERS Safety Report 12108849 (Version 1)
Quarter: 2016Q1

REPORT INFORMATION
  Report Type: Spontaneous
  Country: US (occurrence: None)
  Receive Date: 20160222
  Receipt Date: 20160222
  Transmission Date: 20160526
  Serious: Yes (Other)
  Sender: FDA-Public Use
  Company Number: None

PATIENT
  Age: 55 Year
  Sex: Female

DRUGS (1)
  1. HUMIRA [Suspect]
     Active Substance: ADALIMUMAB
     Dosage: INJECTABLE
     Route: 058

REACTIONS (5)
  - Rash [None]
  - Pruritus [None]
  - Chest discomfort [None]
  - Neuropathy peripheral [None]
  - Furuncle [None]

NARRATIVE: CASE EVENT DATE: 20160219
